FAERS Safety Report 9857038 (Version 1)
Quarter: 2014Q1

REPORT INFORMATION
  Report Type: Spontaneous
  Country: DE (occurrence: DE)
  Receive Date: 20140130
  Receipt Date: 20140130
  Transmission Date: 20141002
  Serious: Yes (Hospitalization, Other)
  Sender: FDA-Public Use
  Company Number: DE-TEVA-458162ISR

PATIENT
  Sex: Female

DRUGS (3)
  1. PACLITAXEL [Suspect]
     Indication: PALLIATIVE CARE
     Dosage: WH.D.22
     Dates: start: 20131007, end: 20131010
  2. CARBOPLATIN [Suspect]
     Indication: PALLIATIVE CARE
     Dosage: 6 X PALLIATIVE AUC5, WHD.D.22
     Dates: start: 20130902, end: 20130906
  3. CARBOPLATIN [Suspect]
     Dosage: 6 X PALLIATIVE AUC5, WHD.D.22
     Dates: start: 20131007, end: 20131010

REACTIONS (1)
  - Polyneuropathy [Recovered/Resolved]
